FAERS Safety Report 23610912 (Version 2)
Quarter: 2024Q1

REPORT INFORMATION
  Report Type: Spontaneous
  Country: IN (occurrence: IN)
  Receive Date: 20240308
  Receipt Date: 20240315
  Transmission Date: 20240410
  Serious: Yes (Other)
  Sender: FDA-Public Use
  Company Number: IN-PFIZER INC-PV202300018048

PATIENT
  Age: 63 Year
  Sex: Female

DRUGS (9)
  1. PALBOCICLIB [Suspect]
     Active Substance: PALBOCICLIB
     Indication: Breast cancer metastatic
     Dosage: 125 MG, 1X/DAY AFTER BREAKFAST FOLLOWED BY 1 WEEK OFF X 2 CYCLE
     Route: 048
     Dates: start: 202301
  2. PALBOCICLIB [Suspect]
     Active Substance: PALBOCICLIB
     Dosage: 125 MG, 1X/DAY AFTER BREAKFAST FOLLOWED BY 1 WEEK OFF X 3 CYCLE
     Route: 048
  3. LETROZOLE [Concomitant]
     Active Substance: LETROZOLE
     Indication: Breast cancer metastatic
     Dosage: 2.5 MG, 1X/DAY AFTER BREAKFAST (6 MONTHS)
  4. CALCIMAX PLUS [CALCIUM CARBONATE;COLECALCIFEROL;MAGNESIUM HYDROXIDE;ZI [Concomitant]
     Dosage: 1 DF, 1X/DAY AFTER LUNCH (6 MONTHS)
  5. UPRISE D3 [Concomitant]
     Dosage: 1 DF, 1X/DAY AFTER BREAKFAST (6MONTH)
  6. PAN [Concomitant]
     Dosage: 40 MG, 1X/DAY AFTER BREAKFAST
  7. DOLO 650 [Concomitant]
     Indication: Pain
     Dosage: 650 MG, 3X/DAY (1 TAB IF PAIN)
  8. DENOSUMAB [Concomitant]
     Active Substance: DENOSUMAB
     Dosage: UNK, MONTHLY (6MONTHS)
     Route: 058
  9. ZOLEDRONIC ACID [Concomitant]
     Active Substance: ZOLEDRONIC ACID
     Dosage: UNK, MONTHLY

REACTIONS (4)
  - Arthropathy [Unknown]
  - Haemoglobin decreased [Unknown]
  - White blood cell count decreased [Unknown]
  - Lymphoedema [Unknown]

NARRATIVE: CASE EVENT DATE: 20230125
